FAERS Safety Report 9916891 (Version 1)
Quarter: 2014Q1

REPORT INFORMATION
  Report Type: Spontaneous
  Country: IN (occurrence: IN)
  Receive Date: 20140221
  Receipt Date: 20140221
  Transmission Date: 20141002
  Serious: Yes (Other)
  Sender: FDA-Public Use
  Company Number: PHHY2014IN017599

PATIENT
  Age: 30 Year
  Sex: Female

DRUGS (7)
  1. METFORMIN [Suspect]
     Indication: DIABETES MELLITUS
     Dosage: 500 MG, PER DAY
  2. METFORMIN [Suspect]
     Dosage: 500 MG, TID
  3. INSULIN MIXTARD 30 HM [Suspect]
     Indication: DIABETES MELLITUS
     Dosage: 6 U, 4 UNITS PRE-BREAKFAST AND 6 UNITS PRE-DINNER
  4. INSULIN MIXTARD 30 HM [Suspect]
     Dosage: 10 UNITS/8 UNITS
  5. INSULIN MIXTARD 30 HM [Suspect]
     Dosage: 12 U, 10 UNITS PRE-BREAKFAST AND 12 UNITS PRE-DINNER
  6. INSULIN MIXTARD 30 HM [Suspect]
     Dosage: 10 U, 10 UNITS, 8 UNITS
  7. DEXTROSE [Suspect]
     Dosage: UNK

REACTIONS (3)
  - Ketonuria [Recovered/Resolved]
  - Maternal exposure during delivery [Unknown]
  - Normal newborn [Unknown]
